FAERS Safety Report 8605178-1 (Version None)
Quarter: 2012Q3

REPORT INFORMATION
  Report Type: 
  Country: None (occurrence: None)
  Receive Date: 20120820
  Receipt Date: 20120810
  Transmission Date: 20120928
  Serious: Yes (Hospitalization)
  Sender: FDA-Public Use
  Company Number: US-US-EMD SERONO, INC.-7154392

PATIENT
  Sex: Male

DRUGS (1)
  1. REBIF [Suspect]
     Route: 065

REACTIONS (3)
  - PREMATURE BABY [None]
  - EXPOSURE VIA FATHER [None]
  - BLOOD GLUCOSE DECREASED [None]
